FAERS Safety Report 8285790 (Version 21)
Quarter: 2015Q1

REPORT INFORMATION
  Report Type: Report from Study
  Country: CA (occurrence: CA)
  Receive Date: 20111213
  Receipt Date: 20150112
  Transmission Date: 20150721
  Serious: Yes (Hospitalization, Other)
  Sender: FDA-Public Use
  Company Number: PHHY2011CA106286

PATIENT
  Age: 54 Year
  Sex: Male

DRUGS (2)
  1. SANDOSTATIN LAR DEPOT [Suspect]
     Active Substance: OCTREOTIDE ACETATE
     Indication: PANCREATIC NEUROENDOCRINE TUMOUR
     Dosage: 30 MG, EVERY 4 WEEKS
     Route: 030
     Dates: start: 20111129
  2. AFINITOR [Suspect]
     Active Substance: EVEROLIMUS
     Indication: PANCREATIC NEUROENDOCRINE TUMOUR
     Dosage: 10 MG, QD
     Route: 048
     Dates: start: 20140923

REACTIONS (25)
  - Food poisoning [Recovering/Resolving]
  - Gait disturbance [Unknown]
  - Hepatic mass [Unknown]
  - Injection site pain [Recovered/Resolved]
  - Hepatic pain [Unknown]
  - Fatigue [Unknown]
  - Decreased appetite [Unknown]
  - Headache [Unknown]
  - Photophobia [Unknown]
  - Night sweats [Unknown]
  - Abdominal pain upper [Recovered/Resolved]
  - Diabetes mellitus [Unknown]
  - Diarrhoea [Unknown]
  - Faeces discoloured [Unknown]
  - Pleurisy [Unknown]
  - Metastases to liver [Unknown]
  - Vomiting [Unknown]
  - Pyrexia [Recovering/Resolving]
  - Abdominal pain [Recovering/Resolving]
  - Feeling abnormal [Unknown]
  - Blood pressure increased [Unknown]
  - Tension [Unknown]
  - Weight decreased [Unknown]
  - Blood cholesterol increased [Unknown]
  - Asthenia [Unknown]

NARRATIVE: CASE EVENT DATE: 2014
